FAERS Safety Report 16088047 (Version 3)
Quarter: 2019Q3

REPORT INFORMATION
  Report Type: Spontaneous
  Country: US (occurrence: US)
  Receive Date: 20190319
  Receipt Date: 20190722
  Transmission Date: 20191004
  Serious: Yes (Death, Hospitalization, Other)
  Sender: FDA-Public Use
  Company Number: US-ASTRAZENECA-2019SE40763

PATIENT
  Age: 49 Year
  Sex: Female
  Weight: 251.1 kg

DRUGS (17)
  1. VITAMIN B COMPLEX [Concomitant]
     Active Substance: CYANOCOBALAMIN\DEXPANTHENOL\NIACINAMIDE\PYRIDOXINE HYDROCHLORIDE\RIBOFLAVIN 5^-PHOSPHATE SODIUM\THIAMINE HYDROCHLORIDE\VITAMIN B COMPLEX
  2. GABAPENTIN. [Concomitant]
     Active Substance: GABAPENTIN
  3. PRAVASTATIN. [Concomitant]
     Active Substance: PRAVASTATIN
  4. SERTRALINE [Concomitant]
     Active Substance: SERTRALINE HYDROCHLORIDE
  5. ZINC. [Concomitant]
     Active Substance: ZINC
  6. OMEPRAZOLE. [Suspect]
     Active Substance: OMEPRAZOLE
     Route: 048
  7. POTASSIUM GLUCONATE [Concomitant]
     Active Substance: POTASSIUM GLUCONATE
  8. ACIDOPHILUS [Concomitant]
     Active Substance: LACTOBACILLUS ACIDOPHILUS
  9. METOPROLOL. [Suspect]
     Active Substance: METOPROLOL
     Indication: ATRIAL FIBRILLATION
     Route: 048
  10. LEVOTHYROXINE. [Concomitant]
     Active Substance: LEVOTHYROXINE
  11. LORATADINE. [Concomitant]
     Active Substance: LORATADINE
  12. CLONAZEPAM. [Concomitant]
     Active Substance: CLONAZEPAM
  13. FUROSEMIDE. [Concomitant]
     Active Substance: FUROSEMIDE
  14. FOLIC ACID. [Concomitant]
     Active Substance: FOLIC ACID
  15. GUAIFENESIN. [Concomitant]
     Active Substance: GUAIFENESIN
  16. SELENIUM [Concomitant]
     Active Substance: SELENIUM
  17. XARELTO [Concomitant]
     Active Substance: RIVAROXABAN

REACTIONS (8)
  - Febrile convulsion [Unknown]
  - Hypotension [Recovered/Resolved]
  - Right ventricular dysfunction [Not Recovered/Not Resolved]
  - Atrial fibrillation [Recovered/Resolved]
  - Pulmonary hypertension [Unknown]
  - Malignant neoplasm progression [Fatal]
  - Hypoxia [Not Recovered/Not Resolved]
  - Syncope [Recovered/Resolved]

NARRATIVE: CASE EVENT DATE: 20190301
